FAERS Safety Report 5673118-3 (Version None)
Quarter: 2008Q1

REPORT INFORMATION
  Report Type: 
  Country: None (occurrence: None)
  Receive Date: 20080319
  Receipt Date: 20080310
  Transmission Date: 20080703
  Serious: Yes (Hospitalization)
  Sender: FDA-Public Use
  Company Number: JP-ASTRAZENECA-2008SE01357

PATIENT
  Age: 83 Day
  Sex: Female
  Weight: 3 kg

DRUGS (3)
  1. BLOPRESS [Suspect]
     Route: 048
  2. INCREMIN SYRUP [Concomitant]
     Indication: ANAEMIA NEONATAL
     Route: 048
     Dates: start: 20071226
  3. ALFAROL [Concomitant]
     Indication: RICKETS
     Route: 048
     Dates: start: 20080125

REACTIONS (1)
  - HYPONATRAEMIA [None]
